FAERS Safety Report 13366511 (Version 1)
Quarter: 2017Q1

REPORT INFORMATION
  Report Type: Spontaneous
  Country: CN (occurrence: CN)
  Receive Date: 20170323
  Receipt Date: 20170323
  Transmission Date: 20170429
  Serious: Yes (Death, Other)
  Sender: FDA-Public Use
  Company Number: CN-009507513-1703CHN003674

PATIENT
  Age: 72 Year
  Sex: Female

DRUGS (1)
  1. SINGULAIR [Suspect]
     Active Substance: MONTELUKAST SODIUM
     Indication: COUGH
     Dosage: 1 TABLET, ONCE
     Route: 048
     Dates: start: 20170215, end: 20170215

REACTIONS (10)
  - Loss of consciousness [Fatal]
  - Dysphagia [Fatal]
  - Language disorder [Fatal]
  - Nervous system disorder [Fatal]
  - Gastrointestinal disorder [Fatal]
  - Selective eating disorder [Fatal]
  - Nausea [Not Recovered/Not Resolved]
  - Product use issue [Unknown]
  - Decreased appetite [Not Recovered/Not Resolved]
  - Somnolence [Not Recovered/Not Resolved]

NARRATIVE: CASE EVENT DATE: 201702
